FAERS Safety Report 23786283 (Version 3)
Quarter: 2024Q2

REPORT INFORMATION
  Report Type: Spontaneous
  Country: US (occurrence: US)
  Receive Date: 20240426
  Receipt Date: 20240628
  Transmission Date: 20240716
  Serious: Yes (Other)
  Sender: FDA-Public Use
  Company Number: US-ABBVIE-5734160

PATIENT
  Sex: Female
  Weight: 76.7 kg

DRUGS (5)
  1. LILETTA [Suspect]
     Active Substance: LEVONORGESTREL
     Indication: Product used for unknown indication
     Dosage: TIME INTERVAL: AS NECESSARY
     Route: 015
     Dates: start: 20231208, end: 20240419
  2. COREG [Concomitant]
     Active Substance: CARVEDILOL
     Indication: Product used for unknown indication
     Route: 050
  3. LOSARTAN [Concomitant]
     Active Substance: LOSARTAN
     Indication: Product used for unknown indication
     Route: 050
  4. ROSUVASTATIN [Concomitant]
     Active Substance: ROSUVASTATIN
     Indication: Product used for unknown indication
     Route: 050
  5. SPIRONOLACTONE [Concomitant]
     Active Substance: SPIRONOLACTONE
     Indication: Product used for unknown indication
     Route: 050

REACTIONS (3)
  - Device expulsion [Recovered/Resolved]
  - Haemorrhage [Unknown]
  - Pain [Unknown]

NARRATIVE: CASE EVENT DATE: 20240101
